FAERS Safety Report 20874753 (Version 2)
Quarter: 2022Q3

REPORT INFORMATION
  Report Type: Spontaneous
  Country: CA (occurrence: CA)
  Receive Date: 20220526
  Receipt Date: 20220928
  Transmission Date: 20221026
  Serious: Yes (Other)
  Sender: FDA-Public Use
  Company Number: CA-SAMSUNG BIOEPIS-SB-2022-12226

PATIENT
  Age: 33 Year
  Sex: Female

DRUGS (1)
  1. INFLIXIMAB [Suspect]
     Active Substance: INFLIXIMAB
     Indication: Crohn^s disease
     Route: 042

REACTIONS (7)
  - Abdominal pain [Unknown]
  - Feeling abnormal [Unknown]
  - Condition aggravated [Unknown]
  - Foot fracture [Unknown]
  - Postoperative wound infection [Unknown]
  - Intentional product use issue [Unknown]
  - Off label use [Unknown]
